FAERS Safety Report 14535109 (Version 1)
Quarter: 2018Q1

REPORT INFORMATION
  Report Type: Spontaneous
  Country: US (occurrence: US)
  Receive Date: 20180214
  Receipt Date: 20180214
  Transmission Date: 20180509
  Serious: Yes (Death)
  Sender: FDA-Public Use
  Company Number: None

PATIENT
  Age: 69 Year
  Sex: Female

DRUGS (4)
  1. TACROLIMUS. [Suspect]
     Active Substance: TACROLIMUS
     Indication: PANCREAS TRANSPLANT
     Route: 048
     Dates: start: 20170401, end: 20180202
  2. FORTEO [Concomitant]
     Active Substance: TERIPARATIDE
  3. MEPRON [Concomitant]
     Active Substance: ATOVAQUONE
  4. MYCOPHENOLATE [Suspect]
     Active Substance: MYCOPHENOLIC ACID
     Indication: PANCREAS TRANSPLANT
     Route: 048
     Dates: start: 20170401, end: 20180202

REACTIONS (1)
  - Death [None]

NARRATIVE: CASE EVENT DATE: 20180202
